FAERS Safety Report 17914563 (Version 1)
Quarter: 2020Q2

REPORT INFORMATION
  Report Type: Spontaneous
  Country: DE (occurrence: DE)
  Receive Date: 20200619
  Receipt Date: 20200619
  Transmission Date: 20200714
  Serious: No
  Sender: FDA-Public Use
  Company Number: DE-HORMOSAN PHARMA GMBH-2020-00828

PATIENT
  Sex: Male
  Weight: 80 kg

DRUGS (1)
  1. OXYCODONE HCL 2 X TAGLICH HORMOSAN 80 MG [Suspect]
     Active Substance: OXYCODONE HYDROCHLORIDE
     Indication: PRODUCT USED FOR UNKNOWN INDICATION
     Dosage: 80 MILLIGRAM, QD
     Route: 065
     Dates: start: 20190428

REACTIONS (5)
  - Vomiting [Unknown]
  - Constipation [Unknown]
  - Pruritus [Unknown]
  - Hyperhidrosis [Unknown]
  - Nausea [Unknown]

NARRATIVE: CASE EVENT DATE: 20190617
